FAERS Safety Report 13156621 (Version 1)
Quarter: 2017Q1

REPORT INFORMATION
  Report Type: Spontaneous
  Country: US (occurrence: US)
  Receive Date: 20170126
  Receipt Date: 20170126
  Transmission Date: 20170428
  Serious: No
  Sender: FDA-Public Use
  Company Number: US-ELI_LILLY_AND_COMPANY-US201701009160

PATIENT
  Sex: Male

DRUGS (21)
  1. INSULIN HUMAN [Suspect]
     Active Substance: INSULIN HUMAN
     Dosage: 15 U, EACH EVENING
     Route: 065
  2. TYLENOL EXTRA STRENGTH [Concomitant]
     Active Substance: ACETAMINOPHEN
  3. ASPIRINE [Concomitant]
     Active Substance: ASPIRIN
  4. DILTIAZEM. [Concomitant]
     Active Substance: DILTIAZEM
  5. FISH OIL [Concomitant]
     Active Substance: FISH OIL
  6. INSULIN HUMAN [Suspect]
     Active Substance: INSULIN HUMAN
     Dosage: 25 U, AT NOON
     Route: 065
  7. INSULIN GLARGINE [Concomitant]
     Active Substance: INSULIN GLARGINE
  8. FUROSEMIDE. [Concomitant]
     Active Substance: FUROSEMIDE
  9. INSULIN HUMAN [Suspect]
     Active Substance: INSULIN HUMAN
     Dosage: 15 U, EACH EVENING
     Route: 065
     Dates: start: 201401
  10. VITAMIN C [Concomitant]
     Active Substance: ASCORBIC ACID
  11. INSULIN HUMAN [Suspect]
     Active Substance: INSULIN HUMAN
     Indication: TYPE 2 DIABETES MELLITUS
     Dosage: 30 U, EACH MORNING
     Route: 065
     Dates: start: 201401
  12. INSULIN HUMAN [Suspect]
     Active Substance: INSULIN HUMAN
     Dosage: 30 U, EACH MORNING
     Route: 065
  13. HYDRALAZINE [Concomitant]
     Active Substance: HYDRALAZINE HYDROCHLORIDE
  14. ATORVASTATIN [Concomitant]
     Active Substance: ATORVASTATIN
  15. INSULIN HUMAN [Suspect]
     Active Substance: INSULIN HUMAN
     Dosage: 25 U, AT NOON
     Route: 065
     Dates: start: 201401
  16. VICTOZA [Concomitant]
     Active Substance: LIRAGLUTIDE
  17. POTASSIUM [Concomitant]
     Active Substance: POTASSIUM
  18. FENOFIBRATE. [Concomitant]
     Active Substance: FENOFIBRATE
  19. METFORMIN [Concomitant]
     Active Substance: METFORMIN HYDROCHLORIDE
  20. METOPROLOL. [Concomitant]
     Active Substance: METOPROLOL
  21. LORATADINE. [Concomitant]
     Active Substance: LORATADINE

REACTIONS (2)
  - Incorrect drug administration duration [Unknown]
  - Blood glucose increased [Unknown]
